FAERS Safety Report 6544688-8 (Version None)
Quarter: 2010Q1

REPORT INFORMATION
  Report Type: 
  Country: None (occurrence: None)
  Receive Date: 20100115
  Receipt Date: 20100105
  Transmission Date: 20100710
  Serious: Yes (Hospitalization)
  Sender: FDA-Public Use
  Company Number: AMAG200900081

PATIENT
  Age: 90 Year
  Sex: Female
  Weight: 50 kg

DRUGS (11)
  1. FERAHEME [Suspect]
     Indication: IRON DEFICIENCY ANAEMIA
     Dosage: 510 MG, SINGLE, INTRAVENOUS ; 510 MG, SINGLE, INTRAVENOUS
     Route: 042
     Dates: start: 20091203, end: 20091203
  2. FERAHEME [Suspect]
     Indication: IRON DEFICIENCY ANAEMIA
     Dosage: 510 MG, SINGLE, INTRAVENOUS ; 510 MG, SINGLE, INTRAVENOUS
     Route: 042
     Dates: start: 20091210, end: 20091210
  3. KAYEXALATE [Concomitant]
  4. TRAMADOL HCL [Concomitant]
  5. CYANOCOBALAMIN [Concomitant]
  6. VITAMIN B6 [Concomitant]
  7. ASCORBIC ACID [Concomitant]
  8. VITAMIN E (TOCOPHERYL ACETATE) [Concomitant]
  9. AMLODIPINE [Concomitant]
  10. COLCHICINE (COLCHICINE) [Concomitant]
  11. HYDROCODONE BITARTRATE [Suspect]
     Dosage: 10/325

REACTIONS (16)
  - AORTIC VALVE INCOMPETENCE [None]
  - CARDIAC FAILURE CONGESTIVE [None]
  - CARDIOVASCULAR DISORDER [None]
  - CHEST DISCOMFORT [None]
  - CHEST PAIN [None]
  - DIARRHOEA [None]
  - ELECTROCARDIOGRAM T WAVE ABNORMAL [None]
  - HYPERTENSION [None]
  - LEFT VENTRICULAR HYPERTROPHY [None]
  - MITRAL VALVE CALCIFICATION [None]
  - MITRAL VALVE DISEASE [None]
  - NASOPHARYNGITIS [None]
  - NAUSEA [None]
  - PRODUCTIVE COUGH [None]
  - TRICUSPID VALVE INCOMPETENCE [None]
  - VOMITING [None]
